FAERS Safety Report 26080520 (Version 1)
Quarter: 2025Q4

REPORT INFORMATION
  Report Type: Spontaneous
  Country: EU (occurrence: EU)
  Receive Date: 20251124
  Receipt Date: 20251124
  Transmission Date: 20260117
  Serious: Yes (Death)
  Sender: AUROBINDO
  Company Number: EU-APOTEX-2017AP007323

PATIENT
  Age: 15 Year
  Sex: Male

DRUGS (6)
  1. IBUPROFEN [Suspect]
     Active Substance: IBUPROFEN
     Indication: Product used for unknown indication
     Dosage: UNK
     Route: 065
  2. TOLTERODINE TARTRATE [Suspect]
     Active Substance: TOLTERODINE TARTRATE
     Indication: Product used for unknown indication
     Dosage: UNK
     Route: 065
  3. OXYBUTYNIN CHLORIDE [Suspect]
     Active Substance: OXYBUTYNIN CHLORIDE
     Indication: Product used for unknown indication
     Dosage: UNK
     Route: 065
  4. BOTOX [Suspect]
     Active Substance: ONABOTULINUMTOXINA
     Indication: Muscle spasticity
     Dosage: UNK
     Route: 065
  5. SEVOFLURANE [Suspect]
     Active Substance: SEVOFLURANE
     Indication: Sedation
     Dosage: UNK
     Route: 065
  6. NITROUS OXIDE [Suspect]
     Active Substance: NITROUS OXIDE
     Indication: Product used for unknown indication
     Dosage: UNK
     Route: 065

REACTIONS (3)
  - Aspiration [Fatal]
  - Cerebral artery embolism [Fatal]
  - Deep vein thrombosis [Fatal]
